FAERS Safety Report 7000726-X (Version None)
Quarter: 2010Q3

REPORT INFORMATION
  Report Type: 
  Country: None (occurrence: None)
  Receive Date: 20100920
  Receipt Date: 20100416
  Transmission Date: 20110219
  Serious: No
  Sender: FDA-Public Use
  Company Number: US-ASTRAZENECA-2010SE17011

PATIENT
  Sex: Female

DRUGS (5)
  1. SEROQUEL [Suspect]
     Indication: AFFECTIVE DISORDER
     Route: 048
     Dates: start: 20090701, end: 20100413
  2. SEROQUEL [Suspect]
     Indication: SLEEP DISORDER
     Route: 048
     Dates: start: 20090701, end: 20100413
  3. SEROQUEL [Suspect]
     Indication: BIPOLAR DISORDER
     Route: 048
     Dates: start: 20090701, end: 20100413
  4. PRSTIQUE [Concomitant]
     Indication: DEPRESSION
  5. LAMICTAL [Concomitant]
     Indication: AFFECTIVE DISORDER

REACTIONS (3)
  - ANXIETY [None]
  - DRUG DOSE OMISSION [None]
  - PANIC ATTACK [None]
